FAERS Safety Report 10041589 (Version 1)
Quarter: 2014Q1

REPORT INFORMATION
  Report Type: Spontaneous
  Country: US (occurrence: US)
  Receive Date: 20140327
  Receipt Date: 20140327
  Transmission Date: 20141002
  Serious: No
  Sender: FDA-Public Use
  Company Number: US-BAYER-2014-046623

PATIENT
  Age: 79 Year
  Sex: Male
  Weight: 77.1 kg

DRUGS (8)
  1. ALEVE CAPLET [Suspect]
     Indication: BACK PAIN
     Dosage: 1-2 DF, BID (2 CAPLETS IN MORNING, AND 1 AT NIGHT)
     Route: 048
     Dates: start: 201403
  2. CENTRUM [MINERALS NOS,VITAMINS NOS] [Concomitant]
  3. FISH OIL [Concomitant]
  4. GLUCOSAMINE [Concomitant]
  5. XANAX [Concomitant]
  6. SYNTHROID [Concomitant]
  7. LIMBITROL [Concomitant]
  8. ARTHROTEC [DICLOFENAC SODIUM] [Concomitant]

REACTIONS (2)
  - Constipation [Not Recovered/Not Resolved]
  - Bowel movement irregularity [Not Recovered/Not Resolved]
